FAERS Safety Report 8838513 (Version 1)
Quarter: 2012Q4

REPORT INFORMATION
  Report Type: 
  Country: CA (occurrence: CA)
  Receive Date: 20121012
  Receipt Date: 20121012
  Transmission Date: 20130627
  Serious: Yes (Death)
  Sender: FDA-Public Use
  Company Number: CA-PFIZER INC-2012251909

PATIENT

DRUGS (1)
  1. MORPHINE SULFATE [Suspect]
     Indication: ANALGESIC THERAPY
     Dosage: 10 mg, single
     Route: 058

REACTIONS (2)
  - Incorrect dose administered [Fatal]
  - Cardiac failure congestive [Fatal]
